FAERS Safety Report 5323994-9 (Version None)
Quarter: 2007Q2

REPORT INFORMATION
  Report Type: 
  Country: None (occurrence: None)
  Receive Date: 20070509
  Receipt Date: 20070509
  Transmission Date: 20071010
  Serious: Yes (Hospitalization)
  Sender: FDA-Public Use
  Company Number: None

PATIENT
  Age: 60 Year
  Sex: Male

DRUGS (11)
  1. AZATHIOPRINE [Suspect]
     Indication: CHRONIC INFLAMMATORY DEMYELINATING POLYRADICULONEUROPATHY
     Dates: start: 20020901, end: 20070329
  2. GLIPIZIDE [Concomitant]
  3. ZOLOFT [Concomitant]
  4. TERAZOSIN HCL [Concomitant]
  5. SIMVASTATIN [Concomitant]
  6. PREDNISONE TAB [Concomitant]
  7. ALLOPURINOL [Concomitant]
  8. IMURAN [Concomitant]
  9. ROSIGLITAZONE [Concomitant]
  10. METFORMIN HCL [Concomitant]
  11. OMEPRAZOLE [Concomitant]

REACTIONS (1)
  - BONE MARROW FAILURE [None]
